FAERS Safety Report 13025768 (Version 2)
Quarter: 2016Q4

REPORT INFORMATION
  Report Type: Spontaneous
  Country: JP (occurrence: JP)
  Receive Date: 20161214
  Receipt Date: 20161219
  Transmission Date: 20170207
  Serious: Yes (Death, Hospitalization, Other)
  Sender: FDA-Public Use
  Company Number: JP-009507513-1612JPN004763

PATIENT
  Age: 8 Decade
  Sex: Male

DRUGS (2)
  1. ZOLPIDEM TARTRATE. [Suspect]
     Active Substance: ZOLPIDEM TARTRATE
     Indication: INSOMNIA
     Dosage: UNK UNK, QD
     Route: 048
  2. BELSOMRA [Suspect]
     Active Substance: SUVOREXANT
     Indication: INSOMNIA
     Dosage: 15 MG, QD
     Route: 048

REACTIONS (2)
  - Neuroleptic malignant syndrome [Recovered/Resolved]
  - Liver disorder [Fatal]
